FAERS Safety Report 8410978-7 (Version None)
Quarter: 2012Q2

REPORT INFORMATION
  Report Type: 
  Country: None (occurrence: None)
  Receive Date: 20120605
  Receipt Date: 20120605
  Transmission Date: 20120825
  Serious: Yes (Other)
  Sender: FDA-Public Use
  Company Number: NO-TEVA-321212ISR

PATIENT
  Age: 38 Year
  Sex: Female

DRUGS (1)
  1. MODAFANIL [Suspect]

REACTIONS (5)
  - SYNCOPE [None]
  - EAR DISORDER [None]
  - MALAISE [None]
  - DIZZINESS [None]
  - DRUG INTERACTION [None]
